FAERS Safety Report 6764741-3 (Version None)
Quarter: 2010Q2

REPORT INFORMATION
  Report Type: 
  Country: None (occurrence: None)
  Receive Date: 20100610
  Receipt Date: 20100602
  Transmission Date: 20101027
  Serious: Yes (Other)
  Sender: FDA-Public Use
  Company Number: US-CELGENEUS-163-21880-10060530

PATIENT
  Sex: Male

DRUGS (2)
  1. REVLIMID [Suspect]
     Indication: MULTIPLE MYELOMA
     Route: 048
     Dates: start: 20100329
  2. REVLIMID [Suspect]
     Route: 048
     Dates: start: 20060801

REACTIONS (3)
  - HAEMORRHAGE [None]
  - MALIGNANT FIBROUS HISTIOCYTOMA [None]
  - URINE ANALYSIS ABNORMAL [None]
